FAERS Safety Report 5575873-X (Version None)
Quarter: 2007Q4

REPORT INFORMATION
  Report Type: 
  Country: None (occurrence: None)
  Receive Date: 20071130
  Receipt Date: 20070731
  Transmission Date: 20080405
  Serious: No
  Sender: FDA-Public Use
  Company Number: US200708000219

PATIENT
  Age: 38 Year
  Sex: Female

DRUGS (2)
  1. BYETTA [Suspect]
     Indication: WEIGHT CONTROL
     Dosage: 10 UG, 2/D, SUBCUTANEOUS
     Route: 058
     Dates: start: 20070611
  2. ANTIHYPERTENSIVES [Concomitant]

REACTIONS (2)
  - INJECTION SITE PAIN [None]
  - URINARY TRACT INFECTION [None]
